FAERS Safety Report 9745433 (Version 1)
Quarter: 2013Q4

REPORT INFORMATION
  Report Type: Spontaneous
  Country: US (occurrence: None)
  Receive Date: 20131206
  Receipt Date: 20131206
  Transmission Date: 20140711
  Serious: No
  Sender: FDA-Public Use
  Company Number: None

PATIENT
  Age: 42 Year
  Sex: Female
  Weight: 77.11 kg

DRUGS (1)
  1. HYDROXYCHLOROQUINE SULFATE [Suspect]
     Indication: ARTHRITIS
     Route: 048
     Dates: start: 20130507, end: 20131107

REACTIONS (4)
  - Drug ineffective [None]
  - Product substitution issue [None]
  - Product quality issue [None]
  - Quality of life decreased [None]
